FAERS Safety Report 9992584 (Version 1)
Quarter: 2014Q1

REPORT INFORMATION
  Report Type: Spontaneous
  Country: US (occurrence: US)
  Receive Date: 20140310
  Receipt Date: 20140310
  Transmission Date: 20141002
  Serious: Yes (Other)
  Sender: FDA-Public Use
  Company Number: US-PFIZER INC-2014067757

PATIENT
  Age: 45 Year
  Sex: Female
  Weight: 51.25 kg

DRUGS (2)
  1. ADVIL [Suspect]
     Indication: TOOTH EXTRACTION
     Dosage: 200 MG, EVERY 4 HRS
     Dates: start: 20140306
  2. OXYCONTIN [Concomitant]
     Indication: PAIN
     Dosage: UNK

REACTIONS (3)
  - Aphagia [Unknown]
  - Tongue disorder [Unknown]
  - Glossodynia [Unknown]
